FAERS Safety Report 8890096 (Version 7)
Quarter: 2014Q1

REPORT INFORMATION
  Report Type: Report from Study
  Country: CA (occurrence: CA)
  Receive Date: 20121106
  Receipt Date: 20140115
  Transmission Date: 20141002
  Serious: Yes (Other)
  Sender: FDA-Public Use
  Company Number: PHHY2012CA080700

PATIENT
  Age: 69 Year
  Sex: Male

DRUGS (3)
  1. SANDOSTATIN LAR [Suspect]
     Indication: NEUROENDOCRINE CARCINOMA
     Dosage: 30 MG, QMO
     Route: 030
     Dates: start: 20080125
  2. SANDOSTATIN LAR [Suspect]
     Dosage: 20 MG, QMO
     Route: 030
  3. SANDOSTATIN LAR [Suspect]
     Dosage: 30 MG, QMO
     Route: 030

REACTIONS (11)
  - Blood pressure diastolic decreased [Unknown]
  - Renal cyst [Unknown]
  - Cholelithiasis [Unknown]
  - Blood pressure systolic increased [Unknown]
  - Back pain [Unknown]
  - Bone pain [Recovered/Resolved]
  - Spinal disorder [Unknown]
  - Pain [Unknown]
  - Heart rate decreased [Unknown]
  - Headache [Recovered/Resolved]
  - Abdominal pain upper [Unknown]
